FAERS Safety Report 23963134 (Version 2)
Quarter: 2024Q3

REPORT INFORMATION
  Report Type: Spontaneous
  Country: US (occurrence: US)
  Receive Date: 20240611
  Receipt Date: 20240724
  Transmission Date: 20241017
  Serious: Yes (Other)
  Sender: AMGEN
  Company Number: US-AMGEN-USASP2024109359

PATIENT
  Sex: Male

DRUGS (3)
  1. TEPEZZA [Suspect]
     Active Substance: TEPROTUMUMAB-TRBW
     Indication: Endocrine ophthalmopathy
     Dosage: UNK
     Route: 042
  2. TEPEZZA [Suspect]
     Active Substance: TEPROTUMUMAB-TRBW
     Dosage: UNK
     Route: 042
     Dates: end: 2022
  3. RYBELSUS [Concomitant]
     Active Substance: SEMAGLUTIDE
     Dosage: UNK UNK, BID

REACTIONS (6)
  - Exophthalmos [Unknown]
  - Strabismus [Unknown]
  - Visual impairment [Unknown]
  - Ocular hyperaemia [Unknown]
  - Dry eye [Not Recovered/Not Resolved]
  - Eye irritation [Unknown]
